FAERS Safety Report 18885419 (Version 1)
Quarter: 2021Q1

REPORT INFORMATION
  Report Type: Spontaneous
  Country: US (occurrence: US)
  Receive Date: 20210211
  Receipt Date: 20210211
  Transmission Date: 20210420
  Serious: No
  Sender: FDA-Public Use
  Company Number: None

PATIENT
  Age: 50 Year
  Sex: Male
  Weight: 70.31 kg

DRUGS (2)
  1. LISINOPRIL (LISINOPROL) 20MG TAB [Suspect]
     Active Substance: LISINOPRIL
     Indication: HYPERTENSION
     Route: 048
     Dates: start: 20200925, end: 20201015
  2. LISINOPRIL (LISINOPROL) 20MG TAB [Suspect]
     Active Substance: LISINOPRIL
     Indication: DIABETES MELLITUS
     Route: 048
     Dates: start: 20200925, end: 20201015

REACTIONS (1)
  - Acute kidney injury [None]

NARRATIVE: CASE EVENT DATE: 20201014
